FAERS Safety Report 8261478-9 (Version None)
Quarter: 2012Q2

REPORT INFORMATION
  Report Type: 
  Country: None (occurrence: None)
  Receive Date: 20120405
  Receipt Date: 20120403
  Transmission Date: 20120825
  Serious: Yes (Other)
  Sender: FDA-Public Use
  Company Number: US-PFIZER INC-2011224088

PATIENT
  Sex: Female

DRUGS (3)
  1. BYETTA [Concomitant]
     Indication: DIABETES MELLITUS
     Dosage: UNK
     Dates: start: 20050101
  2. MECLIZINE [Concomitant]
     Indication: DIZZINESS
     Dosage: ONLY WHEN NEEDED, UNK
     Dates: start: 20090101
  3. PROVERA [Suspect]
     Indication: HORMONE REPLACEMENT THERAPY
     Dosage: 10 MG, UNK
     Route: 048
     Dates: start: 20090901, end: 20101001

REACTIONS (2)
  - EMBOLISM [None]
  - DEAFNESS [None]
